FAERS Safety Report 11822860 (Version 1)
Quarter: 2015Q4

REPORT INFORMATION
  Report Type: Spontaneous
  Country: US (occurrence: US)
  Receive Date: 20151210
  Receipt Date: 20151210
  Transmission Date: 20160305
  Serious: No
  Sender: FDA-Public Use
  Company Number: US-JNJFOC-20150621412

PATIENT
  Age: 87 Year
  Sex: Male

DRUGS (2)
  1. IMBRUVICA [Suspect]
     Active Substance: IBRUTINIB
     Indication: WALDENSTROM^S MACROGLOBULINAEMIA
     Route: 048
     Dates: start: 201505
  2. HYDROCODONE [Concomitant]
     Active Substance: HYDROCODONE

REACTIONS (6)
  - Decreased appetite [Unknown]
  - Incorrect dose administered [Not Recovered/Not Resolved]
  - Confusional state [Unknown]
  - Nausea [Unknown]
  - Arthralgia [Unknown]
  - Rash erythematous [Unknown]

NARRATIVE: CASE EVENT DATE: 201505
